FAERS Safety Report 10483986 (Version 1)
Quarter: 2014Q3

REPORT INFORMATION
  Report Type: Spontaneous
  Country: US (occurrence: None)
  Receive Date: 20140929
  Receipt Date: 20140929
  Transmission Date: 20150326
  Serious: Yes (Hospitalization)
  Sender: FDA-Public Use
  Company Number: None

PATIENT
  Age: 29 Year
  Sex: Male
  Weight: 100.5 kg

DRUGS (1)
  1. BUPRENORPHINE/NALOXONE [Suspect]
     Active Substance: BUPRENORPHINE\NALOXONE
     Indication: WITHDRAWAL SYNDROME
     Route: 060
     Dates: start: 20140505, end: 20140508

REACTIONS (1)
  - Mental status changes [None]

NARRATIVE: CASE EVENT DATE: 20140508
